FAERS Safety Report 6239833-8 (Version None)
Quarter: 2009Q2

REPORT INFORMATION
  Report Type: 
  Country: None (occurrence: None)
  Receive Date: 20090618
  Receipt Date: 20090618
  Transmission Date: 20091009
  Serious: No
  Sender: FDA-Public Use
  Company Number: None

PATIENT
  Age: 60 Year
  Sex: Female
  Weight: 99.7913 kg

DRUGS (1)
  1. ZICAM NASAL SPRAY [Suspect]
     Indication: NASOPHARYNGITIS
     Dosage: CAN'T REMEMBER 2 WEEKS IN MID JULY 2007
     Dates: start: 20070701

REACTIONS (2)
  - AGEUSIA [None]
  - ANOSMIA [None]
